FAERS Safety Report 24362314 (Version 1)
Quarter: 2024Q3

REPORT INFORMATION
  Report Type: Spontaneous
  Country: FR (occurrence: FR)
  Receive Date: 20240925
  Receipt Date: 20240925
  Transmission Date: 20241017
  Serious: Yes (Hospitalization, Other)
  Sender: PFIZER
  Company Number: None

PATIENT
  Age: 74 Year
  Sex: Female
  Weight: 63.5 kg

DRUGS (3)
  1. ADRIAMYCIN [Suspect]
     Active Substance: DOXORUBICIN HYDROCHLORIDE
     Indication: Triple negative breast cancer
     Dosage: 60 MG/M2
     Route: 042
     Dates: start: 20240604, end: 20240807
  2. CYCLOPHOSPHAMIDE [Suspect]
     Active Substance: CYCLOPHOSPHAMIDE
     Indication: Triple negative breast cancer
     Dosage: 600 MG/M2
     Route: 042
     Dates: start: 20240604, end: 20240807
  3. KEYTRUDA [Suspect]
     Active Substance: PEMBROLIZUMAB
     Indication: Triple negative breast cancer
     Dosage: PEMBROLIZUMAB AAP (KEYTRUDA) 200MG
     Route: 042
     Dates: start: 20240215, end: 20240807

REACTIONS (5)
  - Mucosal inflammation [Recovering/Resolving]
  - Pancytopenia [Recovering/Resolving]
  - Neuropathy peripheral [Recovering/Resolving]
  - Haemorrhoids [Recovering/Resolving]
  - Diarrhoea [Recovering/Resolving]

NARRATIVE: CASE EVENT DATE: 20240807
